FAERS Safety Report 19006313 (Version 2)
Quarter: 2025Q3

REPORT INFORMATION
  Report Type: Spontaneous
  Country: EU (occurrence: EU)
  Receive Date: 20210315
  Receipt Date: 20250806
  Transmission Date: 20251020
  Serious: Yes (Hospitalization, Other)
  Sender: AUROBINDO
  Company Number: EU-GLAXOSMITHKLINE-BE2021EME044857

PATIENT
  Age: 12 Year
  Sex: Female

DRUGS (2)
  1. LAMOTRIGINE [Suspect]
     Active Substance: LAMOTRIGINE
     Indication: Generalised tonic-clonic seizure
     Route: 065
  2. METHYLPREDNISOLONE [Concomitant]
     Active Substance: METHYLPREDNISOLONE
     Indication: Product used for unknown indication
     Dosage: 2 MILLIGRAM/KILOGRAM, ONCE A DAY
     Route: 065

REACTIONS (23)
  - Drug reaction with eosinophilia and systemic symptoms [Recovered/Resolved]
  - Pyrexia [Recovered/Resolved]
  - Rash scarlatiniform [Recovered/Resolved]
  - Hepatitis fulminant [Recovered/Resolved]
  - Leukopenia [Recovered/Resolved]
  - Thrombocytopenia [Recovered/Resolved]
  - Ascites [Recovered/Resolved]
  - Condition aggravated [Recovered/Resolved]
  - Serum ferritin increased [Recovered/Resolved]
  - Dermatitis [Recovered/Resolved]
  - Conjunctivitis [Recovered/Resolved]
  - Hepatic enzyme increased [Recovered/Resolved]
  - Lymphadenopathy [Recovered/Resolved]
  - Leukocytosis [Recovered/Resolved]
  - Scarlet fever [Recovered/Resolved]
  - Oropharyngeal pain [Recovered/Resolved]
  - Strawberry tongue [Recovered/Resolved]
  - Lymphocyte morphology abnormal [Recovered/Resolved]
  - Erythema infectiosum [Recovered/Resolved]
  - Hepatosplenomegaly [Recovered/Resolved]
  - Malaise [Recovered/Resolved]
  - Liver function test increased [Recovered/Resolved]
  - Epstein-Barr virus infection [Recovered/Resolved]
